FAERS Safety Report 17659607 (Version 7)
Quarter: 2020Q4

REPORT INFORMATION
  Report Type: Other
  Country: US (occurrence: US)
  Receive Date: 20200413
  Receipt Date: 20201230
  Transmission Date: 20210113
  Serious: Yes (Other)
  Sender: FDA-Public Use
  Company Number: US-ROCHE-2578681

PATIENT
  Sex: Female

DRUGS (3)
  1. CELLCEPT [Suspect]
     Active Substance: MYCOPHENOLATE MOFETIL\MYCOPHENOLATE MOFETIL HYDROCHLORIDE
     Indication: RENAL TRANSPLANT
     Route: 048
  2. CELLCEPT [Suspect]
     Active Substance: MYCOPHENOLATE MOFETIL\MYCOPHENOLATE MOFETIL HYDROCHLORIDE
     Route: 048
  3. CELLCEPT [Suspect]
     Active Substance: MYCOPHENOLATE MOFETIL\MYCOPHENOLATE MOFETIL HYDROCHLORIDE
     Dosage: 1 TABS EVERY 12 HOURS
     Route: 048

REACTIONS (7)
  - Loss of consciousness [Unknown]
  - Chronic kidney disease [Unknown]
  - Herpes zoster [Recovering/Resolving]
  - Feeling abnormal [Unknown]
  - Cerebrovascular accident [Unknown]
  - Blood pressure abnormal [Unknown]
  - Blood pressure measurement [Unknown]
